FAERS Safety Report 15570571 (Version 1)
Quarter: 2018Q4

REPORT INFORMATION
  Report Type: Spontaneous
  Country: US (occurrence: US)
  Receive Date: 20181031
  Receipt Date: 20181031
  Transmission Date: 20190205
  Serious: No
  Sender: FDA-Public Use
  Company Number: US-NEXGEN PHARMA, INC.-2058263

PATIENT
  Age: 47 Year
  Sex: Female

DRUGS (2)
  1. BACLOFEN. [Concomitant]
     Active Substance: BACLOFEN
     Route: 065
  2. CHENODIOL TABLETS [Suspect]
     Active Substance: CHENODIOL
     Route: 048
     Dates: start: 20170121

REACTIONS (2)
  - Musculoskeletal stiffness [Recovering/Resolving]
  - Tendon pain [Recovering/Resolving]
